FAERS Safety Report 9890100 (Version 1)
Quarter: 2014Q1

REPORT INFORMATION
  Report Type: Spontaneous
  Country: US (occurrence: US)
  Receive Date: 20140212
  Receipt Date: 20140212
  Transmission Date: 20141002
  Serious: No
  Sender: FDA-Public Use
  Company Number: US-BIOGENIDEC-2014BI011226

PATIENT
  Sex: Female
  Weight: 74 kg

DRUGS (8)
  1. TECFIDERA [Suspect]
     Indication: PRODUCT USED FOR UNKNOWN INDICATION
     Route: 048
  2. DETROL [Concomitant]
     Dosage: DOSE UNIT:1
  3. HYDROCHLORTHIAZIDE [Concomitant]
  4. MACROBID [Concomitant]
  5. BACLOFEN [Concomitant]
  6. LEVOTHYROXINE [Concomitant]
  7. VITAMIN D [Concomitant]
  8. QVAR [Concomitant]

REACTIONS (1)
  - Sinusitis [Unknown]
